FAERS Safety Report 16446676 (Version 1)
Quarter: 2019Q2

REPORT INFORMATION
  Report Type: Spontaneous
  Country: FR (occurrence: FR)
  Receive Date: 20190618
  Receipt Date: 20190618
  Transmission Date: 20190711
  Serious: Yes (Other)
  Sender: FDA-Public Use
  Company Number: FR-PFIZER INC-2019252944

PATIENT
  Age: 5 Year
  Sex: Female
  Weight: 16.7 kg

DRUGS (2)
  1. EXJADE [Suspect]
     Active Substance: DEFERASIROX
     Indication: SICKLE CELL ANAEMIA WITH CRISIS
     Dosage: 360 MG, 1X/DAY
     Route: 048
     Dates: start: 20190503, end: 20190510
  2. IBUPROFEN. [Suspect]
     Active Substance: IBUPROFEN
     Indication: ABDOMINAL PAIN
     Dosage: 120 MG, 1X/DAY (1 DOSE WEIGHT PER DAY)
     Route: 048
     Dates: start: 20190507, end: 20190508

REACTIONS (2)
  - Renal tubular disorder [Recovering/Resolving]
  - Beta 2 microglobulin urine increased [Recovering/Resolving]

NARRATIVE: CASE EVENT DATE: 20190510
